FAERS Safety Report 10175840 (Version 1)
Quarter: 2014Q2

REPORT INFORMATION
  Report Type: Other
  Country: US (occurrence: US)
  Receive Date: 20140516
  Receipt Date: 20140516
  Transmission Date: 20141212
  Serious: Yes (Death)
  Sender: FDA-Public Use
  Company Number: US-SHIRE-US201402045

PATIENT
  Sex: Male

DRUGS (1)
  1. PENTASA [Suspect]
     Indication: PRODUCT USED FOR UNKNOWN INDICATION
     Dosage: 2000 MG (FOUR 500 MG CAPSULES), 2X/DAY:BID
     Route: 048

REACTIONS (1)
  - Death [Fatal]
